FAERS Safety Report 5684601-9 (Version None)
Quarter: 2008Q1

REPORT INFORMATION
  Report Type: 
  Country: None (occurrence: None)
  Receive Date: 20080328
  Receipt Date: 20070330
  Transmission Date: 20080703
  Serious: No
  Sender: FDA-Public Use
  Company Number: US-BRISTOL-MYERS SQUIBB COMPANY-13733944

PATIENT
  Age: 48 Year
  Sex: Male
  Weight: 79 kg

DRUGS (1)
  1. ERBITUX [Suspect]
     Indication: SQUAMOUS CELL CARCINOMA
     Dosage: HAS RECEIVED 4 TREATMENTS

REACTIONS (1)
  - DERMATITIS ACNEIFORM [None]
